FAERS Safety Report 7519135-X (Version None)
Quarter: 2011Q2

REPORT INFORMATION
  Report Type: 
  Country: None (occurrence: None)
  Receive Date: 20110602
  Receipt Date: 20110524
  Transmission Date: 20111010
  Serious: Yes (Other)
  Sender: FDA-Public Use
  Company Number: PHHY2011US37669

PATIENT
  Sex: Female

DRUGS (3)
  1. VAGIFEM [Suspect]
     Dosage: 10 UG
  2. LIALDA [Concomitant]
     Dosage: UNK
  3. VIVELLE-DOT [Suspect]
     Indication: ATROPHIC VULVOVAGINITIS
     Dosage: 0.375 MG
     Route: 062
     Dates: end: 20110201

REACTIONS (3)
  - COLITIS ULCERATIVE [None]
  - FEELING ABNORMAL [None]
  - HYPOTENSION [None]
